FAERS Safety Report 25526444 (Version 2)
Quarter: 2025Q3

REPORT INFORMATION
  Report Type: Report from Study
  Country: US (occurrence: US)
  Receive Date: 20250707
  Receipt Date: 20250714
  Transmission Date: 20251021
  Serious: Yes (Other)
  Sender: MALLINCKRODT
  Company Number: US-MALLINCKRODT-MNK202503971

PATIENT
  Age: 57 Year
  Sex: Male

DRUGS (4)
  1. CORTICOTROPIN [Suspect]
     Active Substance: CORTICOTROPIN
     Indication: Uveitis
     Route: 058
     Dates: start: 20250620
  2. HUMIRA [Concomitant]
     Active Substance: ADALIMUMAB
  3. HUMIRA [Concomitant]
     Active Substance: ADALIMUMAB
  4. ADCO-INDOMETHACIN [Concomitant]

REACTIONS (4)
  - Blindness [Not Recovered/Not Resolved]
  - Oral pain [Unknown]
  - Oropharyngeal pain [Unknown]
  - Insomnia [Unknown]

NARRATIVE: CASE EVENT DATE: 20250601
